FAERS Safety Report 7760839-1 (Version None)
Quarter: 2011Q3

REPORT INFORMATION
  Report Type: 
  Country: None (occurrence: None)
  Receive Date: 20110919
  Receipt Date: 20110914
  Transmission Date: 20111222
  Serious: Yes (Other)
  Sender: FDA-Public Use
  Company Number: BR-PFIZER INC-2011217107

PATIENT
  Age: 60 Year
  Sex: Female

DRUGS (3)
  1. LIPITOR [Suspect]
     Indication: BLOOD CHOLESTEROL INCREASED
     Dosage: 20 MG, PER DAY
     Route: 048
     Dates: start: 20110301, end: 20110601
  2. LEVOTHYROXINE SODIUM [Concomitant]
     Dosage: UNK
  3. ATORVASTATIN CALCIUM [Suspect]
     Indication: BLOOD CHOLESTEROL INCREASED
     Dosage: 20 MG, PER DAY
     Route: 048
     Dates: start: 20110601, end: 20110825

REACTIONS (9)
  - PALPITATIONS [None]
  - PERIPHERAL COLDNESS [None]
  - OEDEMA PERIPHERAL [None]
  - FEELING ABNORMAL [None]
  - CHOLELITHIASIS [None]
  - NASOPHARYNGITIS [None]
  - MUSCLE SPASMS [None]
  - PALLOR [None]
  - COLD SWEAT [None]
